FAERS Safety Report 4740870-0 (Version None)
Quarter: 2005Q3

REPORT INFORMATION
  Report Type: 
  Country: None (occurrence: None)
  Receive Date: 20050810
  Receipt Date: 20050203
  Transmission Date: 20060218
  Serious: No
  Sender: FDA-Public Use
  Company Number: US-GLAXOSMITHKLINE-A0543642A

PATIENT
  Age: 59 Year
  Sex: Female

DRUGS (1)
  1. TAGAMET HB 200 [Suspect]
     Dates: start: 20050203

REACTIONS (2)
  - DYSPEPSIA [None]
  - GASTROOESOPHAGEAL REFLUX DISEASE [None]
